FAERS Safety Report 7168809-1 (Version None)
Quarter: 2010Q4

REPORT INFORMATION
  Report Type: 
  Country: None (occurrence: None)
  Receive Date: 20101216
  Receipt Date: 20100414
  Transmission Date: 20110411
  Serious: Yes (Hospitalization)
  Sender: FDA-Public Use
  Company Number: US-AMGEN-QUU385719

PATIENT

DRUGS (7)
  1. ENBREL [Suspect]
     Indication: RHEUMATOID ARTHRITIS
     Dosage: 50 MG, QWK
     Route: 058
     Dates: start: 20080601
  2. LEVOTHYROXINE SODIUM [Concomitant]
     Dosage: 25 A?G, QD
     Route: 048
  3. ERGOCALCIFEROL [Concomitant]
  4. PLACQUENIL [Concomitant]
     Dosage: 200 MG, BID
     Route: 048
  5. ESOMEPRAZOLE MAGNESIUM [Concomitant]
  6. ESCITALOPRAM [Concomitant]
     Dosage: 10 MG, QD
     Route: 048
  7. PANTOPRAZOLE SODIUM [Concomitant]
     Dosage: 40 MG, BID
     Route: 048

REACTIONS (2)
  - ESCHERICHIA URINARY TRACT INFECTION [None]
  - NASOPHARYNGITIS [None]
